FAERS Safety Report 7546584-6 (Version None)
Quarter: 2011Q2

REPORT INFORMATION
  Report Type: 
  Country: None (occurrence: None)
  Receive Date: 20110607
  Receipt Date: 20110523
  Transmission Date: 20111010
  Serious: Yes (Hospitalization, Other)
  Sender: FDA-Public Use
  Company Number: 2011MA006329

PATIENT
  Age: 43 Year
  Sex: Female

DRUGS (5)
  1. VENLAFAXINE HYDROCHLORIDE [Suspect]
     Indication: DEPRESSION
     Dosage: 300 MG;OD
  2. PROPYPHENAZONE [Concomitant]
  3. CLONAZEPAM [Concomitant]
  4. ALPRAZOLAM [Concomitant]
  5. BUTALBITAL [Concomitant]

REACTIONS (17)
  - BLOOD CREATINE PHOSPHOKINASE INCREASED [None]
  - GAIT DISTURBANCE [None]
  - INSOMNIA [None]
  - SUICIDE ATTEMPT [None]
  - BLOOD PRESSURE INCREASED [None]
  - ABNORMAL BEHAVIOUR [None]
  - PSYCHOMOTOR HYPERACTIVITY [None]
  - HEADACHE [None]
  - CARDIAC MURMUR [None]
  - HYPOKALAEMIA [None]
  - CONDITION AGGRAVATED [None]
  - CONFUSIONAL STATE [None]
  - DEPRESSED MOOD [None]
  - DRUG SCREEN POSITIVE [None]
  - HALLUCINATION, VISUAL [None]
  - DELIRIUM [None]
  - DISORIENTATION [None]
